FAERS Safety Report 7967819-1 (Version None)
Quarter: 2011Q4

REPORT INFORMATION
  Report Type: 
  Country: None (occurrence: None)
  Receive Date: 20111207
  Receipt Date: 20111124
  Transmission Date: 20120403
  Serious: Yes (Death)
  Sender: FDA-Public Use
  Company Number: AXC-2011-000272

PATIENT
  Age: 47 Year
  Sex: Male

DRUGS (6)
  1. AMINOLEBAN EN (ALANINE, AMINOACETIC ACID, ARGININE HYDROCHLORIDE, ISOL [Concomitant]
  2. SPIRONOLACTONE [Concomitant]
  3. URSODIOL [Suspect]
     Indication: PRODUCT USED FOR UNKNOWN INDICATION
     Dosage: 600 MG, QD, ORAL
     Route: 048
     Dates: start: 20110331, end: 20110101
  4. RABEPRAZOLE SODIUM [Concomitant]
  5. LIVACT /00847901/ (ISOLEUCINE, LEUCINE, VALINE) [Concomitant]
  6. LEBENIN (LACTOBACILLUS ACIDOPHILUS, LACTOBACILLUS BIFIDUS, LYOPHILIZED [Suspect]
     Indication: GASTROINTESTINAL DISORDER
     Dosage: 3 DF, QD, ORAL
     Route: 048
     Dates: start: 20110331, end: 20110612

REACTIONS (2)
  - HEPATITIS [None]
  - LYMPHOCYTE STIMULATION TEST POSITIVE [None]
